FAERS Safety Report 24773560 (Version 1)
Quarter: 2024Q4

REPORT INFORMATION
  Report Type: Spontaneous
  Country: US (occurrence: US)
  Receive Date: 20241225
  Receipt Date: 20241225
  Transmission Date: 20250115
  Serious: Yes (Other)
  Sender: ORGANON
  Company Number: US-ORGANON-O2412USA001855

PATIENT
  Sex: Female

DRUGS (1)
  1. NEXPLANON [Suspect]
     Active Substance: ETONOGESTREL
     Indication: Contraception
     Dosage: 1 IMPLANT OF 68 MG FOR 3 YEARS
     Route: 059

REACTIONS (3)
  - Vaginal haemorrhage [Not Recovered/Not Resolved]
  - Therapeutic response unexpected [Unknown]
  - Contraindicated product administered [Unknown]
